FAERS Safety Report 19002190 (Version 8)
Quarter: 2024Q3

REPORT INFORMATION
  Report Type: Spontaneous
  Country: GB (occurrence: GB)
  Receive Date: 20210312
  Receipt Date: 20240801
  Transmission Date: 20241017
  Serious: Yes (Hospitalization, Other)
  Sender: ACCORD
  Company Number: None

PATIENT
  Age: 36 Year
  Sex: Female

DRUGS (42)
  1. CAPECITABINE [Suspect]
     Active Substance: CAPECITABINE
     Indication: Breast cancer metastatic
     Route: 048
     Dates: start: 20200501, end: 20200727
  2. PACLITAXEL [Suspect]
     Active Substance: PACLITAXEL
     Indication: Breast cancer metastatic
     Route: 042
     Dates: start: 20170817, end: 20171214
  3. TRASTUZUMAB [Suspect]
     Active Substance: TRASTUZUMAB
     Indication: Breast cancer metastatic
     Dosage: 600 MILLIGRAM, Q3WK
     Route: 058
     Dates: start: 20170817, end: 20200416
  4. LAPATINIB [Suspect]
     Active Substance: LAPATINIB
     Indication: Breast cancer metastatic
     Route: 048
     Dates: start: 20200522, end: 20200727
  5. XGEVA [Suspect]
     Active Substance: DENOSUMAB
     Indication: Product used for unknown indication
     Route: 058
     Dates: start: 20171109, end: 20190926
  6. HYALURONATE SODIUM [Suspect]
     Active Substance: HYALURONATE SODIUM
     Indication: Breast cancer metastatic
     Dosage: 600 MG, EVERY 3 WEEKS
     Route: 058
     Dates: start: 20170817, end: 20200416
  7. ACETAMINOPHEN [Concomitant]
     Active Substance: ACETAMINOPHEN
     Indication: Pain
     Route: 048
     Dates: start: 201708
  8. RANITIDINE [Concomitant]
     Active Substance: RANITIDINE
     Indication: Product used for unknown indication
     Route: 042
     Dates: start: 20170817
  9. RIVAROXABAN [Concomitant]
     Active Substance: RIVAROXABAN
     Indication: Product used for unknown indication
     Route: 048
     Dates: start: 20200205
  10. SERC [Concomitant]
     Indication: Product used for unknown indication
     Route: 048
     Dates: start: 20190820
  11. TINZAPARIN [Concomitant]
     Active Substance: TINZAPARIN
     Indication: Pulmonary embolism
     Route: 058
     Dates: start: 20190813, end: 20200220
  12. TRIMETHOPRIM [Concomitant]
     Active Substance: TRIMETHOPRIM
     Indication: Product used for unknown indication
     Route: 048
     Dates: start: 20171211, end: 201712
  13. CALCIUM\CHOLECALCIFEROL [Concomitant]
     Active Substance: CALCIUM\CHOLECALCIFEROL
     Indication: Product used for unknown indication
     Route: 048
     Dates: start: 20171109
  14. CHLORAMPHENICOL [Concomitant]
     Active Substance: CHLORAMPHENICOL
     Indication: Product used for unknown indication
     Route: 047
     Dates: start: 20171218, end: 20180205
  15. CHLORHEXIDINE [Concomitant]
     Active Substance: CHLORHEXIDINE
     Indication: Product used for unknown indication
     Dosage: UNK, QD, MOUTH WASH
     Route: 048
     Dates: start: 201709, end: 201801
  16. CLOBAZAM [Concomitant]
     Active Substance: CLOBAZAM
     Indication: Seizure
     Route: 048
  17. DENOSUMAB [Concomitant]
     Active Substance: DENOSUMAB
     Indication: Product used for unknown indication
     Route: 058
     Dates: start: 20171109, end: 20190926
  18. DEXAMETHASONE [Concomitant]
     Active Substance: DEXAMETHASONE
     Indication: Confusional state
     Route: 048
     Dates: start: 20190429
  19. DOMPERIDONE [Concomitant]
     Active Substance: DOMPERIDONE
     Indication: Nausea
     Route: 048
     Dates: start: 20200501
  20. BUDESONIDE\FORMOTEROL [Concomitant]
     Active Substance: BUDESONIDE\FORMOTEROL
     Indication: Product used for unknown indication
     Dates: start: 201708, end: 201712
  21. CALCIUM\CARBOXYMETHYLCELLULOSE\DEVICE\MAGNESIUM\POTASSIUM\SODIUM CL\SO [Concomitant]
     Active Substance: CALCIUM\CARBOXYMETHYLCELLULOSE\DEVICE\MAGNESIUM\POTASSIUM\SODIUM CL\SORBITOL
     Indication: Product used for unknown indication
     Route: 048
     Dates: end: 201710
  22. LANSOPRAZOLE [Concomitant]
     Active Substance: LANSOPRAZOLE
     Indication: Product used for unknown indication
     Route: 048
     Dates: start: 201707
  23. LEUPROLIDE ACETATE [Concomitant]
     Active Substance: ISOPROPYL ALCOHOL\LEUPROLIDE ACETATE
     Indication: Product used for unknown indication
     Route: 030
  24. LORAZEPAM [Concomitant]
     Active Substance: LORAZEPAM
     Indication: Product used for unknown indication
     Route: 048
     Dates: start: 20191127
  25. LORAZEPAM [Concomitant]
     Active Substance: LORAZEPAM
     Indication: Product used for unknown indication
     Route: 042
     Dates: start: 20190807, end: 20190807
  26. METOCLOPRAMIDE [Concomitant]
     Active Substance: METOCLOPRAMIDE
     Indication: Product used for unknown indication
     Route: 048
     Dates: start: 20191127
  27. HYALURONIDASE (HUMAN RECOMBINANT)\TRASTUZUMAB [Suspect]
     Active Substance: HYALURONIDASE (HUMAN RECOMBINANT)\TRASTUZUMAB
     Indication: Breast cancer metastatic
     Dates: start: 20170817, end: 20200416
  28. THIORIDAZINE [Concomitant]
     Active Substance: THIORIDAZINE
     Indication: Product used for unknown indication
     Dates: start: 20190820
  29. LOPERAMIDE [Concomitant]
     Active Substance: LOPERAMIDE
     Indication: Diarrhoea
     Dates: start: 20200501
  30. HYALURONIDASE (HUMAN RECOMBINANT)\TRASTUZUMAB [Suspect]
     Active Substance: HYALURONIDASE (HUMAN RECOMBINANT)\TRASTUZUMAB
     Indication: Breast cancer metastatic
     Dates: start: 20170817
  31. DEXAMETHASONE [Concomitant]
     Active Substance: DEXAMETHASONE
     Indication: Confusional state
     Route: 048
     Dates: start: 20170817, end: 20171214
  32. DEXAMETHASONE [Concomitant]
     Active Substance: DEXAMETHASONE
     Indication: Confusional state
     Route: 048
     Dates: start: 20180103, end: 20180107
  33. TRASTUZUMAB [Suspect]
     Active Substance: TRASTUZUMAB
     Indication: Breast cancer metastatic
     Route: 058
  34. CLOBAZAM [Concomitant]
     Active Substance: CLOBAZAM
     Indication: Seizure
     Dates: start: 20190805, end: 201911
  35. DOMPERIDONE [Concomitant]
     Active Substance: DOMPERIDONE
     Indication: Nausea
     Dates: start: 20191113, end: 20200501
  36. TINZAPARIN [Concomitant]
     Active Substance: TINZAPARIN
     Indication: Product used for unknown indication
     Dosage: 14000 INTERNATIONAL UNIT, QD
     Route: 058
     Dates: start: 20200628
  37. DEXAMETHASONE [Concomitant]
     Active Substance: DEXAMETHASONE
     Indication: Confusional state
     Route: 048
  38. DEXAMETHASONE [Concomitant]
     Active Substance: DEXAMETHASONE
     Indication: Confusional state
     Route: 048
     Dates: start: 20171222, end: 20171228
  39. DEXAMETHASONE [Concomitant]
     Active Substance: DEXAMETHASONE
     Indication: Confusional state
     Route: 048
     Dates: start: 20190426, end: 20190429
  40. DEXAMETHASONE [Concomitant]
     Active Substance: DEXAMETHASONE
     Indication: Confusional state
     Route: 048
     Dates: start: 20200622
  41. DEXAMETHASONE [Concomitant]
     Active Substance: DEXAMETHASONE
     Indication: Confusional state
     Route: 048
     Dates: start: 20180108, end: 20180112
  42. DEXAMETHASONE [Concomitant]
     Active Substance: DEXAMETHASONE
     Indication: Confusional state
     Route: 048
     Dates: start: 20171229, end: 20180102

REACTIONS (5)
  - Product use issue [Unknown]
  - Presyncope [Recovered/Resolved]
  - Diarrhoea [Not Recovered/Not Resolved]
  - Acute kidney injury [Recovered/Resolved]
  - Hypokalaemia [Recovered/Resolved]

NARRATIVE: CASE EVENT DATE: 20200601
